FAERS Safety Report 4534897-1 (Version None)
Quarter: 2004Q4

REPORT INFORMATION
  Report Type: 
  Country: None (occurrence: None)
  Receive Date: 20041222
  Receipt Date: 20040714
  Transmission Date: 20050328
  Serious: No
  Sender: FDA-Public Use
  Company Number: US-BRISTOL-MYERS SQUIBB COMPANY-12639670

PATIENT
  Sex: Female

DRUGS (4)
  1. PRAVACHOL [Suspect]
     Route: 048
     Dates: start: 19990101, end: 20000101
  2. NORVASC [Suspect]
     Route: 048
     Dates: start: 19990101, end: 20000101
  3. RAMIPRIL [Suspect]
     Route: 048
     Dates: start: 19990101, end: 20000101
  4. LIPITOR [Suspect]
     Route: 048
     Dates: start: 19990101, end: 20000101

REACTIONS (4)
  - BLOOD CHOLESTEROL INCREASED [None]
  - COUGH [None]
  - OEDEMA PERIPHERAL [None]
  - THROAT TIGHTNESS [None]
